FAERS Safety Report 9965480 (Version 4)
Quarter: 2014Q2

REPORT INFORMATION
  Report Type: Spontaneous
  Country: CA (occurrence: CA)
  Receive Date: 20140305
  Receipt Date: 20140424
  Transmission Date: 20141212
  Serious: Yes (Other)
  Sender: FDA-Public Use
  Company Number: CA-009507513-1403CAN002165

PATIENT
  Age: 75 Year
  Sex: Male

DRUGS (1)
  1. COPPERTONE CONTINUOUS SPRAY CLEAR SUNSCREEN SPF30 [Suspect]
     Route: 065

REACTIONS (2)
  - Anaphylactic reaction [Recovered/Resolved]
  - Resuscitation [Recovered/Resolved]
